FAERS Safety Report 16725487 (Version 1)
Quarter: 2019Q4

REPORT INFORMATION
  Report Type: Spontaneous
  Country: US (occurrence: US)
  Receive Date: 20190820
  Receipt Date: 20190820
  Transmission Date: 20200122
  Serious: Yes (Death)
  Sender: FDA-Public Use
  Company Number: None

PATIENT
  Age: 65 Year
  Sex: Female

DRUGS (2)
  1. NA [Concomitant]
     Active Substance: SODIUM
  2. BOTOX [Suspect]
     Active Substance: ONABOTULINUMTOXINA
     Indication: SALIVA ALTERED
     Dosage: ?          OTHER FREQUENCY:Q90DAYS;?
     Route: 058
     Dates: start: 20180828, end: 20190516

REACTIONS (1)
  - Death [None]

NARRATIVE: CASE EVENT DATE: 20190516
